FAERS Safety Report 8287662-6 (Version None)
Quarter: 2012Q2

REPORT INFORMATION
  Report Type: 
  Country: None (occurrence: None)
  Receive Date: 20120416
  Receipt Date: 20120411
  Transmission Date: 20120825
  Serious: Yes (Hospitalization)
  Sender: FDA-Public Use
  Company Number: PHHO2010DE09539

PATIENT
  Sex: Female
  Weight: 54 kg

DRUGS (14)
  1. TASIGNA [Suspect]
     Dosage: UNK
     Route: 048
     Dates: start: 20100713
  2. PREDNISOLONE [Suspect]
  3. NORVASC [Concomitant]
  4. BISOPROLOL FUMARATE [Concomitant]
  5. PANTOPRAZOLE [Concomitant]
  6. DELIX [Concomitant]
  7. SEROQUEL [Concomitant]
  8. LANTUS [Concomitant]
  9. VITAMIN D [Concomitant]
  10. TASIGNA [Suspect]
     Indication: ACUTE MYELOID LEUKAEMIA
     Dosage: 400 MG, QD
     Route: 048
     Dates: start: 20100503, end: 20100619
  11. AFINITOR [Suspect]
     Indication: ACUTE MYELOID LEUKAEMIA
     Dosage: 5 MG, QD
     Route: 048
     Dates: start: 20100530
  12. CEFUROXIME [Concomitant]
  13. HYDROCHLOROTHIAZIDE [Concomitant]
  14. GLUCOBAY [Concomitant]

REACTIONS (8)
  - PNEUMONIA [None]
  - GENERAL PHYSICAL HEALTH DETERIORATION [None]
  - ANAEMIA [None]
  - GASTROINTESTINAL INFECTION [None]
  - CHEST DISCOMFORT [None]
  - FEBRILE NEUTROPENIA [None]
  - PYREXIA [None]
  - RENAL FAILURE [None]
